FAERS Safety Report 17396848 (Version 3)
Quarter: 2020Q2

REPORT INFORMATION
  Report Type: Report from Study
  Country: CA (occurrence: CA)
  Receive Date: 20200210
  Receipt Date: 20200522
  Transmission Date: 20200713
  Serious: Yes (Hospitalization, Disabling, Other)
  Sender: FDA-Public Use
  Company Number: CA-AMGEN-CANCT2019043365

PATIENT
  Age: 32 Year
  Sex: Male

DRUGS (1)
  1. AIMOVIG [Suspect]
     Active Substance: ERENUMAB-AOOE
     Indication: MIGRAINE
     Dosage: 70 MG, QMO
     Route: 058
     Dates: start: 20190306, end: 20191226

REACTIONS (7)
  - Injection site pruritus [Unknown]
  - Multiple sclerosis [Recovering/Resolving]
  - Multiple sclerosis relapse [Unknown]
  - Injection site pain [Unknown]
  - Dysarthria [Recovering/Resolving]
  - Needle issue [Unknown]
  - General physical condition abnormal [Recovering/Resolving]

NARRATIVE: CASE EVENT DATE: 20190306
